FAERS Safety Report 13541074 (Version 3)
Quarter: 2017Q2

REPORT INFORMATION
  Report Type: Spontaneous
  Country: JP (occurrence: JP)
  Receive Date: 20170512
  Receipt Date: 20170605
  Transmission Date: 20170830
  Serious: Yes (Death, Other)
  Sender: FDA-Public Use
  Company Number: JP-UCBSA-2017017854

PATIENT
  Age: 82 Year
  Sex: Female
  Weight: 29 kg

DRUGS (16)
  1. PERINDOPRIL ERBUMINE. [Concomitant]
     Active Substance: PERINDOPRIL ERBUMINE
     Indication: PRODUCT USED FOR UNKNOWN INDICATION
     Dosage: 8 MG, 2X/DAY (BID)
     Route: 048
     Dates: start: 20170322, end: 20170420
  2. REFLEX [Concomitant]
     Active Substance: MIRTAZAPINE
     Dosage: 45 MG, ONCE DAILY (QD)
     Route: 048
     Dates: start: 20170322, end: 20170330
  3. CEFEPIME [Concomitant]
     Active Substance: CEFEPIME HYDROCHLORIDE
     Indication: PYREXIA
     Dosage: 1 G
     Dates: start: 20170419
  4. ELIQUIS [Concomitant]
     Active Substance: APIXABAN
     Indication: PRODUCT USED FOR UNKNOWN INDICATION
     Dosage: 10 MG, 2X/DAY (BID)
     Route: 048
     Dates: start: 20170317, end: 20170421
  5. FILGRASTIM [Concomitant]
     Active Substance: FILGRASTIM
     Indication: PRODUCT USED FOR UNKNOWN INDICATION
     Dosage: UNK
     Route: 058
     Dates: start: 20170421, end: 20170504
  6. RIVOTRIL [Concomitant]
     Active Substance: CLONAZEPAM
     Indication: DEPRESSION
  7. REFLEX [Concomitant]
     Active Substance: MIRTAZAPINE
     Dosage: 30 MG, ONCE DAILY (QD)
     Route: 048
     Dates: start: 20170331, end: 20170404
  8. E KEPPRA [Suspect]
     Active Substance: LEVETIRACETAM
     Indication: TEMPORAL LOBE EPILEPSY
     Dosage: 500 MG, ONCE DAILY (QD)
     Route: 048
     Dates: start: 20170328, end: 20170418
  9. AMLODIPINE [Concomitant]
     Active Substance: AMLODIPINE BESYLATE
     Indication: PRODUCT USED FOR UNKNOWN INDICATION
     Dosage: 5 MG, ONCE DAILY (QD)
     Route: 048
     Dates: start: 20170331, end: 20170421
  10. SULBACILLIN [Concomitant]
     Active Substance: AMPICILLIN SODIUM\SULBACTAM SODIUM
     Indication: PNEUMONIA ASPIRATION
     Dosage: UNK
     Dates: start: 20170317, end: 20170324
  11. REFLEX [Concomitant]
     Active Substance: MIRTAZAPINE
     Dosage: 30 MG, ONCE DAILY (QD)
     Route: 048
     Dates: start: 20170318, end: 20170321
  12. REFLEX [Concomitant]
     Active Substance: MIRTAZAPINE
     Dosage: 15 MG, ONCE DAILY (QD)
     Route: 048
     Dates: start: 20170405, end: 20170420
  13. SODIUM VALPROATE [Concomitant]
     Active Substance: VALPROATE SODIUM
     Indication: TEMPORAL LOBE EPILEPSY
     Dosage: 50 MG/ML
     Dates: start: 20170419, end: 20170426
  14. REFLEX [Concomitant]
     Active Substance: MIRTAZAPINE
     Indication: PRODUCT USED FOR UNKNOWN INDICATION
     Dosage: UNK
     Route: 048
  15. LAMICTAL [Concomitant]
     Active Substance: LAMOTRIGINE
     Indication: DEPRESSION
     Dosage: 25 MG, 2X/DAY (BID)
     Dates: end: 20170327
  16. RIVOTRIL [Concomitant]
     Active Substance: CLONAZEPAM
     Indication: TEMPORAL LOBE EPILEPSY
     Dosage: 0.5 MG, ONCE DAILY (QD)
     Dates: start: 20170318, end: 20170328

REACTIONS (5)
  - Thrombocytopenia [Fatal]
  - Inappropriate schedule of drug administration [None]
  - Leukopenia [Fatal]
  - Neutrophil count decreased [Fatal]
  - Sepsis [Fatal]

NARRATIVE: CASE EVENT DATE: 2017
